FAERS Safety Report 4323124-6 (Version None)
Quarter: 2004Q1

REPORT INFORMATION
  Report Type: 
  Country: None (occurrence: None)
  Receive Date: 20040322
  Receipt Date: 20040304
  Transmission Date: 20041129
  Serious: Yes (Hospitalization)
  Sender: FDA-Public Use
  Company Number: 02100-JPN-04-0031

PATIENT
  Age: 85 Year
  Sex: Female

DRUGS (2)
  1. CILOSTAZOL [Suspect]
     Indication: CEREBRAL INFARCTION
     Dosage: 200 MG ORAL
     Route: 048
     Dates: start: 20040131, end: 20040203
  2. EFONIDIPINE HYDROCHLORIDE [Suspect]
     Indication: HYPERTENSION
     Dosage: 40 MG ORAL
     Route: 048
     Dates: start: 20040124

REACTIONS (11)
  - AORTIC STENOSIS [None]
  - BLOOD PRESSURE DECREASED [None]
  - CHEST PAIN [None]
  - ELECTROCARDIOGRAM ABNORMAL [None]
  - ELECTROCARDIOGRAM ST SEGMENT DEPRESSION [None]
  - ELECTROCARDIOGRAM ST-T SEGMENT ABNORMAL [None]
  - ELECTROCARDIOGRAM T WAVE ABNORMAL [None]
  - FATIGUE [None]
  - REFLUX OESOPHAGITIS [None]
  - STRESS SYMPTOMS [None]
  - VENTRICULAR EXTRASYSTOLES [None]
